FAERS Safety Report 10392966 (Version 1)
Quarter: 2014Q3

REPORT INFORMATION
  Report Type: Spontaneous
  Country: US (occurrence: US)
  Receive Date: 20140819
  Receipt Date: 20140819
  Transmission Date: 20150326
  Serious: No
  Sender: FDA-Public Use
  Company Number: US-TEVA-485856USA

PATIENT
  Sex: Female

DRUGS (9)
  1. DIGOXIN. [Concomitant]
     Active Substance: DIGOXIN
  2. DULCOLAX [Concomitant]
     Active Substance: BISACODYL OR DOCUSATE SODIUM
  3. LEVOTHYROXINE [Concomitant]
     Active Substance: LEVOTHYROXINE
  4. VITAMIN B12 [Concomitant]
     Active Substance: CYANOCOBALAMIN
  5. VITAMIN D3 [Concomitant]
     Active Substance: CHOLECALCIFEROL
  6. AMLODIPINE [Concomitant]
     Active Substance: AMLODIPINE BESYLATE
  7. CLOPIDOGREL [Suspect]
     Active Substance: CLOPIDOGREL BISULFATE
     Indication: ATRIAL FIBRILLATION
     Route: 048
     Dates: start: 20140411
  8. ASPIRIN. [Concomitant]
     Active Substance: ASPIRIN
  9. METOPROLOL [Concomitant]
     Active Substance: METOPROLOL

REACTIONS (3)
  - Cough [Recovered/Resolved]
  - Throat irritation [Recovered/Resolved]
  - Vitamin D increased [Unknown]
